FAERS Safety Report 25448130 (Version 1)
Quarter: 2025Q2

REPORT INFORMATION
  Report Type: Spontaneous
  Country: SK (occurrence: SK)
  Receive Date: 20250617
  Receipt Date: 20250617
  Transmission Date: 20250717
  Serious: Yes (Death, Other)
  Sender: APELLIS PHARMACEUTICALS
  Company Number: SK-BIOVITRUM-2025-SK-008243

PATIENT

DRUGS (1)
  1. PEGCETACOPLAN [Suspect]
     Active Substance: PEGCETACOPLAN
     Indication: Paroxysmal nocturnal haemoglobinuria
     Dates: start: 20250130

REACTIONS (1)
  - Acute leukaemia [Fatal]
